FAERS Safety Report 20037822 (Version 2)
Quarter: 2021Q4

REPORT INFORMATION
  Report Type: Spontaneous
  Country: AU (occurrence: AU)
  Receive Date: 20211105
  Receipt Date: 20211118
  Transmission Date: 20220303
  Serious: Yes (Death, Other)
  Sender: FDA-Public Use
  Company Number: AU-GLAXOSMITHKLINE-AU2021APC225790

PATIENT
  Age: 50 Year
  Sex: Female

DRUGS (3)
  1. AMBRISENTAN [Suspect]
     Active Substance: AMBRISENTAN
     Indication: Product used for unknown indication
     Dosage: 10 MG, QD
     Route: 048
  2. FLOLAN [Suspect]
     Active Substance: EPOPROSTENOL SODIUM
     Indication: Product used for unknown indication
     Dosage: 1.5 MGVIAL 30 VIALS PER MONTH. 3.6ML/HOUR
  3. TADALAFIL [Suspect]
     Active Substance: TADALAFIL
     Indication: Product used for unknown indication
     Dosage: 2 DF, QD 20MG
     Route: 048

REACTIONS (7)
  - Death [Fatal]
  - Intestinal obstruction [Unknown]
  - Malaise [Unknown]
  - Decreased appetite [Unknown]
  - Abdominal distension [Unknown]
  - Abdominal pain upper [Not Recovered/Not Resolved]
  - Abdominal rigidity [Unknown]

NARRATIVE: CASE EVENT DATE: 20211001
